FAERS Safety Report 7251420-1 (Version None)
Quarter: 2011Q1

REPORT INFORMATION
  Report Type: 
  Country: None (occurrence: None)
  Receive Date: 20110119
  Receipt Date: 20110104
  Transmission Date: 20110831
  Serious: Yes (Other)
  Sender: FDA-Public Use
  Company Number: 11-003

PATIENT
  Sex: Female

DRUGS (1)
  1. ERGOCALCIFEROL [Suspect]
     Dosage: ORAL
     Route: 048
     Dates: start: 20100101

REACTIONS (5)
  - DRY MOUTH [None]
  - DYSPNOEA [None]
  - TREMOR [None]
  - CHEST DISCOMFORT [None]
  - AMNESIA [None]
